FAERS Safety Report 7691332-2 (Version None)
Quarter: 2011Q3

REPORT INFORMATION
  Report Type: 
  Country: None (occurrence: None)
  Receive Date: 20110818
  Receipt Date: 20110808
  Transmission Date: 20111222
  Serious: Yes (Other)
  Sender: FDA-Public Use
  Company Number: PHFR2011GB03408

PATIENT
  Sex: Male

DRUGS (6)
  1. TOPIRAMATE [Concomitant]
     Dosage: 25 MG, DAILY
     Route: 048
  2. ASPIRIN [Concomitant]
     Dosage: 75 MG, DAILY
     Route: 048
  3. ATENOLOL [Concomitant]
     Dosage: 100 MG, DAILY
     Route: 048
  4. TEGRETOL [Suspect]
     Indication: EPILEPSY
     Dosage: UNK
  5. AMLODIPINE [Concomitant]
     Dosage: 10 MG, DAILY
     Route: 048
  6. DOXAZOSIN MESYLATE [Concomitant]
     Dosage: 8 MG, DAILY
     Route: 048

REACTIONS (3)
  - DIZZINESS [None]
  - CONVULSION [None]
  - HYPERHIDROSIS [None]
